FAERS Safety Report 8367004-8 (Version None)
Quarter: 2012Q2

REPORT INFORMATION
  Report Type: 
  Country: None (occurrence: None)
  Receive Date: 20120517
  Receipt Date: 20120510
  Transmission Date: 20120825
  Serious: Yes (Hospitalization, Other)
  Sender: FDA-Public Use
  Company Number: DE-UCBSA-057270

PATIENT
  Age: 65 Year
  Sex: Female
  Weight: 69 kg

DRUGS (14)
  1. NEUPRO [Suspect]
     Indication: PARKINSON'S DISEASE
     Dates: start: 20110629
  2. PK MERZ [Concomitant]
     Indication: PARKINSON'S DISEASE
     Dates: start: 20101119
  3. LEVOCOMP RETARD [Concomitant]
     Indication: PARKINSON'S DISEASE
     Dosage: 100/25 MG
     Dates: start: 20101026
  4. COSOPT [Concomitant]
     Indication: GLAUCOMA
     Dosage: 20/5 MG, DROPS
     Dates: start: 20060101
  5. CALCIMAGON D3 [Concomitant]
     Indication: OSTEOPOROSIS
     Dosage: 1250/10 OTHER MICROGRAMS
     Dates: start: 20080101, end: 20120101
  6. ERGOCALCIFEROL [Concomitant]
     Indication: OSTEOPOROSIS
     Dates: start: 20080101
  7. PK MERZ [Concomitant]
     Dates: start: 20101116, end: 20101118
  8. NEUPRO [Suspect]
     Dates: start: 20110316, end: 20110628
  9. NEUPRO [Suspect]
     Dates: start: 20101127, end: 20110315
  10. LEVOCOMP [Concomitant]
     Indication: PARKINSON'S DISEASE
     Dosage: 100/25 MG
     Dates: start: 20101026
  11. ALENDRON [Concomitant]
     Indication: OSTEOPOROSIS
     Dosage: 70 OTHER MICROGRAMS
     Dates: start: 20080101
  12. NEUPRO [Suspect]
     Dates: start: 20101120, end: 20101126
  13. LEVOCOMP RETARD [Concomitant]
     Dosage: 100/25 MG
     Dates: end: 20101025
  14. MADOPAR LT [Concomitant]
     Indication: PARKINSON'S DISEASE
     Dates: start: 20101113

REACTIONS (1)
  - BREAST CANCER [None]
